FAERS Safety Report 8281424-1 (Version None)
Quarter: 2012Q2

REPORT INFORMATION
  Report Type: 
  Country: None (occurrence: None)
  Receive Date: 20120411
  Receipt Date: 20120411
  Transmission Date: 20120825
  Serious: Yes (Other)
  Sender: FDA-Public Use
  Company Number: None

PATIENT
  Age: 38 Year
  Sex: Female
  Weight: 88.6 kg

DRUGS (1)
  1. CYMBALTA [Suspect]
     Dosage: 20MG. 1 X DAY ORAL
     Route: 048

REACTIONS (5)
  - IMPAIRED DRIVING ABILITY [None]
  - IMPAIRED WORK ABILITY [None]
  - ACTIVITIES OF DAILY LIVING IMPAIRED [None]
  - BLOOD PRESSURE INADEQUATELY CONTROLLED [None]
  - DRUG WITHDRAWAL SYNDROME [None]
